FAERS Safety Report 7549047-7 (Version None)
Quarter: 2011Q2

REPORT INFORMATION
  Report Type: 
  Country: None (occurrence: None)
  Receive Date: 20110615
  Receipt Date: 20110602
  Transmission Date: 20111010
  Serious: Yes (Death)
  Sender: FDA-Public Use
  Company Number: US-ROCHE-782036

PATIENT
  Age: 67 Year
  Sex: Female

DRUGS (2)
  1. BEVACIZUMAB [Suspect]
     Indication: OVARIAN CANCER
     Route: 042
     Dates: start: 20110415
  2. TEMSIROLIMUS [Suspect]
     Indication: OVARIAN CANCER
     Dosage: DAYS 1, 8, 15 AND 22
     Route: 042
     Dates: start: 20110415

REACTIONS (11)
  - DEHYDRATION [None]
  - DISSEMINATED INTRAVASCULAR COAGULATION [None]
  - ATELECTASIS [None]
  - PNEUMONIA [None]
  - VOMITING [None]
  - LYMPHADENOPATHY [None]
  - PYREXIA [None]
  - RESPIRATORY FAILURE [None]
  - IMMOBILE [None]
  - DIARRHOEA [None]
  - BACTERIAL TEST POSITIVE [None]
